FAERS Safety Report 6021605-0 (Version None)
Quarter: 2008Q4

REPORT INFORMATION
  Report Type: 
  Country: None (occurrence: None)
  Receive Date: 20081229
  Receipt Date: 20081218
  Transmission Date: 20090506
  Serious: Yes (Hospitalization, Disabling)
  Sender: FDA-Public Use
  Company Number: PT-WYE-H07419108

PATIENT
  Sex: Female

DRUGS (1)
  1. TRICEF [Suspect]
     Indication: EAR INFECTION
     Dosage: 400 MG PER DAY
     Route: 048
     Dates: start: 20081110, end: 20081117

REACTIONS (2)
  - CLOSTRIDIUM DIFFICILE COLITIS [None]
  - PSEUDOMEMBRANOUS COLITIS [None]
